FAERS Safety Report 13870205 (Version 1)
Quarter: 2017Q3

REPORT INFORMATION
  Report Type: Report from Study
  Country: US (occurrence: BR)
  Receive Date: 20170815
  Receipt Date: 20170815
  Transmission Date: 20171127
  Serious: Yes (Other)
  Sender: FDA-Public Use
  Company Number: US-SUNOVION-2017SUN003578

PATIENT
  Sex: Male
  Weight: 68 kg

DRUGS (1)
  1. INDACATEROL AND GLYCOPYRROLATE [Suspect]
     Active Substance: GLYCOPYRROLATE\INDACATEROL MALEATE
     Indication: CHRONIC OBSTRUCTIVE PULMONARY DISEASE
     Dosage: 1 DF, QD
     Route: 055
     Dates: start: 201705

REACTIONS (12)
  - Secretion discharge [Unknown]
  - Chronic obstructive pulmonary disease [Unknown]
  - Mouth breathing [Unknown]
  - Laryngeal cancer [Unknown]
  - Haemorrhoids [Unknown]
  - Dyspnoea [Unknown]
  - Hypersensitivity [Unknown]
  - Fatigue [Unknown]
  - Catarrh [Unknown]
  - Diarrhoea [Unknown]
  - Abnormal faeces [Unknown]
  - Pruritus [Unknown]
